FAERS Safety Report 24442025 (Version 1)
Quarter: 2024Q4

REPORT INFORMATION
  Report Type: Report from Study
  Country: BR (occurrence: BR)
  Receive Date: 20241016
  Receipt Date: 20241016
  Transmission Date: 20250114
  Serious: Yes (Hospitalization, Other)
  Sender: JOHNSON AND JOHNSON
  Company Number: BR-JNJFOC-20241028305

PATIENT
  Age: 41 Year
  Sex: Male
  Weight: 103 kg

DRUGS (1)
  1. REMICADE [Suspect]
     Active Substance: INFLIXIMAB
     Indication: Crohn^s disease
     Route: 041
     Dates: start: 202110

REACTIONS (4)
  - Colitis [Unknown]
  - Colectomy [Unknown]
  - Drug specific antibody [Unknown]
  - Drug effect less than expected [Unknown]
